FAERS Safety Report 14834715 (Version 4)
Quarter: 2018Q2

REPORT INFORMATION
  Report Type: Spontaneous
  Country: DE (occurrence: DE)
  Receive Date: 20180501
  Receipt Date: 20180514
  Transmission Date: 20180711
  Serious: Yes (Death, Other)
  Sender: FDA-Public Use
  Company Number: DE-BIOMARINAP-DE-2018-117960

PATIENT
  Sex: Male

DRUGS (1)
  1. ALDURAZYME [Suspect]
     Active Substance: LARONIDASE
     Indication: PRODUCT USED FOR UNKNOWN INDICATION
     Dosage: UNK, QW
     Route: 041

REACTIONS (7)
  - General physical health deterioration [Unknown]
  - Hepatomegaly [Unknown]
  - Death [Fatal]
  - Cardiac failure [Unknown]
  - Upper respiratory tract infection [Unknown]
  - Constipation [Unknown]
  - Treatment noncompliance [Unknown]
